FAERS Safety Report 13238279 (Version 2)
Quarter: 2017Q1

REPORT INFORMATION
  Report Type: Report from Study
  Country: US (occurrence: US)
  Receive Date: 20170216
  Receipt Date: 20170228
  Transmission Date: 20170428
  Serious: Yes (Life-Threatening, Other)
  Sender: FDA-Public Use
  Company Number: US-ROCHE-1754893

PATIENT
  Sex: Female

DRUGS (1)
  1. NUTROPIN AQ [Suspect]
     Active Substance: SOMATROPIN
     Indication: HYPOPITUITARISM
     Route: 058
     Dates: start: 20160504, end: 20160518

REACTIONS (9)
  - Influenza [Unknown]
  - Vertigo [Unknown]
  - Paranoia [Recovered/Resolved]
  - Depression [Recovered/Resolved]
  - Dizziness [Unknown]
  - Suicidal ideation [Recovered/Resolved]
  - Anxiety [Recovered/Resolved]
  - Cervical polyp [Recovered/Resolved]
  - Nasopharyngitis [Unknown]
